FAERS Safety Report 5054115-8 (Version None)
Quarter: 2006Q3

REPORT INFORMATION
  Report Type: 
  Country: None (occurrence: None)
  Receive Date: 20060718
  Receipt Date: 20060302
  Transmission Date: 20061208
  Serious: Yes (Hospitalization, Disabling, Other)
  Sender: FDA-Public Use
  Company Number: GB-NOVOPROD-251276

PATIENT
  Age: 8 Year
  Sex: Female
  Weight: 39 kg

DRUGS (5)
  1. NORDITROPIN SIMPLEXX [Suspect]
     Indication: BODY HEIGHT BELOW NORMAL
     Dosage: 1.3 MG, QD
     Route: 058
     Dates: start: 20050811, end: 20051006
  2. FLUDROCORTISONE [Concomitant]
     Indication: ADRENOGENITAL SYNDROME
     Dosage: 150 UG, QD
     Route: 048
     Dates: start: 19970418
  3. HYDROCORTISONE [Concomitant]
     Indication: ADRENOGENITAL SYNDROME
     Dosage: 7.5 MG, QD
     Route: 048
     Dates: start: 20031116
  4. PREDNISOLONE [Concomitant]
     Indication: ADRENOGENITAL SYNDROME
     Dosage: 2 MG, QD
     Route: 048
     Dates: start: 20031116
  5. LEUPRORELIN [Concomitant]
     Indication: BODY HEIGHT BELOW NORMAL
     Dosage: 11.25 MG, QD
     Route: 058
     Dates: start: 20050725

REACTIONS (3)
  - BENIGN INTRACRANIAL HYPERTENSION [None]
  - DIPLOPIA [None]
  - STRABISMUS [None]
